FAERS Safety Report 5712197-1 (Version None)
Quarter: 2008Q2

REPORT INFORMATION
  Report Type: 
  Country: None (occurrence: None)
  Receive Date: 20080422
  Receipt Date: 20080410
  Transmission Date: 20081010
  Serious: Yes (Disabling)
  Sender: FDA-Public Use
  Company Number: CH-WYE-G01073408

PATIENT
  Age: 35 Year
  Sex: Female

DRUGS (6)
  1. EFFEXOR [Suspect]
     Indication: DEPRESSION
     Route: 048
     Dates: start: 20070501, end: 20070901
  2. EFFEXOR [Suspect]
     Dates: start: 20070901
  3. PRAMIPEXOLE DIHYDROCHLORIDE [Suspect]
     Dosage: UNSPECIFIED
     Dates: start: 20080101
  4. LAMICTAL [Concomitant]
     Indication: BIPOLAR II DISORDER
     Route: 048
     Dates: start: 20080101
  5. STILNOX [Concomitant]
     Indication: SLEEP DISORDER
     Dosage: 10 MG
  6. SEROQUEL [Concomitant]
     Dates: start: 20061201, end: 20070901

REACTIONS (7)
  - AGITATION [None]
  - ANTIDEPRESSANT DRUG LEVEL INCREASED [None]
  - DRUG INEFFECTIVE [None]
  - EARLY MORNING AWAKENING [None]
  - MIDDLE INSOMNIA [None]
  - RESTLESS LEGS SYNDROME [None]
  - SLEEP DISORDER [None]
